FAERS Safety Report 4449256-X (Version None)
Quarter: 2004Q3

REPORT INFORMATION
  Report Type: 
  Country: None (occurrence: None)
  Receive Date: 20040910
  Receipt Date: 20040830
  Transmission Date: 20050211
  Serious: Yes (Other)
  Sender: FDA-Public Use
  Company Number: HQWYE836301JUL04

PATIENT
  Age: 20 Year
  Sex: Female

DRUGS (5)
  1. INDERAL [Suspect]
     Indication: MIGRAINE
     Dosage: 40 MG 2X PER 1 DAY
     Route: 048
     Dates: start: 20040201, end: 20040101
  2. NICOTINE [Suspect]
     Indication: SMOKING CESSATION THERAPY
     Dosage: 21 UG 1X PER 1 DAY
     Route: 062
     Dates: start: 20040319, end: 20040430
  3. NICOTINE [Suspect]
     Route: 062
     Dates: start: 20040101
  4. ACETAMINOPHEN [Concomitant]
  5. DEPO-PROVERA [Concomitant]

REACTIONS (4)
  - AGITATION [None]
  - ANXIETY [None]
  - DRUG INTERACTION [None]
  - OBSESSIVE-COMPULSIVE DISORDER [None]
